FAERS Safety Report 8806542 (Version 1)
Quarter: 2012Q4

REPORT INFORMATION
  Report Type: Spontaneous
  Country: US (occurrence: None)
  Receive Date: 20120918
  Receipt Date: 20120918
  Transmission Date: 20130627
  Serious: Yes (Other)
  Sender: FDA-Public Use
  Company Number: 20129016

PATIENT
  Age: 43 Year
  Sex: Female

DRUGS (1)
  1. TESTIM [Suspect]

REACTIONS (7)
  - Accidental exposure to product [None]
  - Mood swings [None]
  - Irritability [None]
  - Headache [None]
  - Hair growth abnormal [None]
  - Enlarged clitoris [None]
  - Tachycardia [None]
